FAERS Safety Report 13790479 (Version 1)
Quarter: 2017Q3

REPORT INFORMATION
  Report Type: Spontaneous
  Country: US (occurrence: US)
  Receive Date: 20170725
  Receipt Date: 20170725
  Transmission Date: 20171127
  Serious: No
  Sender: FDA-Public Use
  Company Number: US-IPSEN BIOPHARMACEUTICALS, INC.-2017-02233

PATIENT
  Sex: Male

DRUGS (18)
  1. SOMATULINE DEPOT [Suspect]
     Active Substance: LANREOTIDE ACETATE
     Indication: NEOPLASM MALIGNANT
     Dosage: 120 MG
     Route: 058
     Dates: start: 20161220
  2. FENTANYL. [Concomitant]
     Active Substance: FENTANYL
     Dosage: 12 MCG/HR
  3. CIPROFLOXACIN. [Concomitant]
     Active Substance: CIPROFLOXACIN
  4. DRONABINOL. [Concomitant]
     Active Substance: DRONABINOL
  5. SUCRALFATE. [Concomitant]
     Active Substance: SUCRALFATE
  6. METFORMIN [Concomitant]
     Active Substance: METFORMIN HYDROCHLORIDE
  7. ILEVRO [Concomitant]
     Active Substance: NEPAFENAC
  8. PANTOPRAZOLE [Concomitant]
     Active Substance: PANTOPRAZOLE
  9. DUREZOL [Concomitant]
     Active Substance: DIFLUPREDNATE
     Indication: NEOPLASM MALIGNANT
  10. DUREZOL [Concomitant]
     Active Substance: DIFLUPREDNATE
     Indication: OFF LABEL USE
  11. KETOROLA [Concomitant]
  12. OLANZAPINE. [Concomitant]
     Active Substance: OLANZAPINE
  13. ONDANSETRON [Concomitant]
     Active Substance: ONDANSETRON
  14. CLONAZEPAM. [Concomitant]
     Active Substance: CLONAZEPAM
  15. FLUZONE QUAD [Concomitant]
     Dates: start: 2016, end: 2017
  16. IPRATROPIUM [Concomitant]
     Active Substance: IPRATROPIUM
  17. SOMATULINE DEPOT [Suspect]
     Active Substance: LANREOTIDE ACETATE
     Indication: OFF LABEL USE
  18. PREVNAR [Concomitant]
     Active Substance: PNEUMOCOCCAL 7-VALENT CONJUGATE VACCINE (DIPHTHERIA CRM197 PROTEIN)

REACTIONS (3)
  - Abdominal discomfort [Recovered/Resolved]
  - Chest discomfort [Recovered/Resolved]
  - Off label use [Unknown]
